FAERS Safety Report 7493524-4 (Version None)
Quarter: 2011Q2

REPORT INFORMATION
  Report Type: 
  Country: None (occurrence: None)
  Receive Date: 20110520
  Receipt Date: 20110516
  Transmission Date: 20111010
  Serious: Yes (Other)
  Sender: FDA-Public Use
  Company Number: AU-PFIZER INC-2011103917

PATIENT
  Sex: Female
  Weight: 75 kg

DRUGS (1)
  1. RELPAX [Suspect]
     Dosage: 40 MG

REACTIONS (1)
  - ANAPHYLACTIC REACTION [None]
